FAERS Safety Report 17540941 (Version 3)
Quarter: 2020Q2

REPORT INFORMATION
  Report Type: Report from Study
  Country: US (occurrence: US)
  Receive Date: 20200313
  Receipt Date: 20200519
  Transmission Date: 20200713
  Serious: Yes (Other)
  Sender: FDA-Public Use
  Company Number: US-AMGEN-USASL2020019758

PATIENT
  Age: 79 Year
  Sex: Female

DRUGS (3)
  1. REPATHA [Suspect]
     Active Substance: EVOLOCUMAB
     Indication: LOW DENSITY LIPOPROTEIN INCREASED
  2. REPATHA [Suspect]
     Active Substance: EVOLOCUMAB
     Indication: HYPERCHOLESTEROLAEMIA
     Dosage: 140 MILLIGRAM, Q2WK
     Route: 065
     Dates: start: 201902
  3. ZETIA [Concomitant]
     Active Substance: EZETIMIBE
     Dosage: UNK

REACTIONS (5)
  - Angina pectoris [Unknown]
  - Fatigue [Unknown]
  - Headache [Unknown]
  - Low density lipoprotein decreased [Recovering/Resolving]
  - Muscle spasms [Recovering/Resolving]
